FAERS Safety Report 12235237 (Version 2)
Quarter: 2016Q2

REPORT INFORMATION
  Report Type: Spontaneous
  Country: BR (occurrence: BR)
  Receive Date: 20160404
  Receipt Date: 20160426
  Transmission Date: 20160815
  Serious: Yes (Other)
  Sender: FDA-Public Use
  Company Number: BR-PFIZER INC-2016181519

PATIENT
  Age: 65 Year
  Sex: Male
  Weight: 90 kg

DRUGS (1)
  1. ADVIL [Suspect]
     Active Substance: IBUPROFEN
     Indication: PAIN
     Dosage: 1 DF, 1 IF HAVE PAIN
     Dates: start: 2012

REACTIONS (6)
  - Neoplasm recurrence [Not Recovered/Not Resolved]
  - Product physical issue [Unknown]
  - Product use issue [Not Recovered/Not Resolved]
  - Poor quality drug administered [Unknown]
  - Meningioma [Not Recovered/Not Resolved]
  - Product taste abnormal [Unknown]

NARRATIVE: CASE EVENT DATE: 2012
